FAERS Safety Report 9238462 (Version 1)
Quarter: 2013Q2

REPORT INFORMATION
  Report Type: Spontaneous
  Country: US (occurrence: US)
  Receive Date: 20130418
  Receipt Date: 20130418
  Transmission Date: 20140414
  Serious: Yes (Hospitalization, Other)
  Sender: FDA-Public Use
  Company Number: PHHY2013US036724

PATIENT
  Age: 74 Year
  Sex: Female

DRUGS (1)
  1. MINOCYCLINE [Suspect]
     Indication: RHEUMATOID ARTHRITIS

REACTIONS (4)
  - Upper gastrointestinal haemorrhage [Unknown]
  - Pigmentation disorder [Unknown]
  - Skin discolouration [Unknown]
  - Scar [Unknown]
